FAERS Safety Report 7812490-2 (Version None)
Quarter: 2011Q4

REPORT INFORMATION
  Report Type: 
  Country: None (occurrence: None)
  Receive Date: 20111013
  Receipt Date: 20111007
  Transmission Date: 20120403
  Serious: Yes (Hospitalization)
  Sender: FDA-Public Use
  Company Number: FR-PFIZER INC-2011239499

PATIENT
  Age: 50 Year
  Sex: Male

DRUGS (12)
  1. ATORVASTATIN CALCIUM [Suspect]
     Dosage: 20 MG, 1X/DAY
     Route: 048
     Dates: end: 20110809
  2. JANUVIA [Suspect]
     Dosage: 0.5 DF, 1X/DAY
     Route: 048
     Dates: end: 20110809
  3. REPAGLINIDE [Suspect]
     Dosage: 3 MG, 3X/DAY
     Route: 048
     Dates: end: 20110809
  4. MYCOPHENOLATE MOFETIL (CELLCEPT) [Concomitant]
  5. OXYCONTIN [Suspect]
     Indication: BACK PAIN
     Dosage: 10 MG, UNK
     Route: 048
     Dates: start: 20110713, end: 20110809
  6. RILMENIDINE [Suspect]
     Dosage: 1 MG, 1X/DAY
     Route: 048
     Dates: end: 20110809
  7. ALLOPURINOL [Suspect]
     Dosage: 300 MG, 1X/DAY
     Route: 048
     Dates: end: 20110809
  8. LERCANIDIPINE [Suspect]
     Dosage: 20 MG, 1X/DAY
     Route: 048
     Dates: end: 20110809
  9. KERLONE [Suspect]
     Dosage: 20 MG, 1X/DAY
     Route: 048
     Dates: end: 20110809
  10. TACROLIMUS [Concomitant]
  11. ENALAPRIL MALEATE AND HYDROCHLOROTHIAZIDE [Suspect]
     Dosage: 1 DF, 1X/DAY
     Route: 048
     Dates: end: 20110809
  12. PREDNISONE [Concomitant]

REACTIONS (4)
  - RENAL FAILURE [None]
  - DEHYDRATION [None]
  - INTESTINAL OBSTRUCTION [None]
  - PANCREATIC ENZYMES INCREASED [None]
